FAERS Safety Report 12378993 (Version 1)
Quarter: 2016Q2

REPORT INFORMATION
  Report Type: Other
  Country: GB (occurrence: GB)
  Receive Date: 20160517
  Receipt Date: 20160517
  Transmission Date: 20160815
  Serious: Yes (Other)
  Sender: FDA-Public Use
  Company Number: GB-MYLANLABS-2016M1019541

PATIENT

DRUGS (10)
  1. CANDESARTAN [Concomitant]
     Active Substance: CANDESARTAN
     Dosage: UNK
  2. GLIMEPIRIDE. [Concomitant]
     Active Substance: GLIMEPIRIDE
     Dosage: UNK
  3. COCODAMOL [Concomitant]
     Active Substance: ACETAMINOPHEN\CODEINE PHOSPHATE
     Dosage: UNK
  4. LEVEMIR [Concomitant]
     Active Substance: INSULIN DETEMIR
     Dosage: UNK
  5. BENDROFLUMETHIAZIDE [Concomitant]
     Active Substance: BENDROFLUMETHIAZIDE
     Dosage: UNK
  6. SIMVASTATIN. [Concomitant]
     Active Substance: SIMVASTATIN
     Dosage: UNK
  7. PIOGLITAZONE. [Suspect]
     Active Substance: PIOGLITAZONE
     Indication: TYPE 2 DIABETES MELLITUS
     Dosage: 30 MG, QD
     Route: 048
     Dates: start: 201509
  8. JANUMET [Concomitant]
     Active Substance: METFORMIN HYDROCHLORIDE\SITAGLIPTIN PHOSPHATE
     Dosage: UNK
  9. ADALAT CC [Concomitant]
     Active Substance: NIFEDIPINE
     Dosage: UNK
  10. PIOGLITAZONE. [Suspect]
     Active Substance: PIOGLITAZONE
     Dosage: 15 MG, QD
     Route: 048
     Dates: start: 201511, end: 20151231

REACTIONS (1)
  - Palpitations [Recovered/Resolved]

NARRATIVE: CASE EVENT DATE: 201510
